FAERS Safety Report 7702912 (Version 2)
Quarter: 2013Q1

REPORT INFORMATION
  Report Type: Spontaneous
  Country: GB (occurrence: None)
  Receive Date: 20101008
  Receipt Date: 20130301
  Transmission Date: 20140127
  Serious: Yes (Other)
  Sender: FDA-Public Use
  Company Number: GBR-SPN-2009003

PATIENT
  Sex: Female

DRUGS (5)
  1. CYSTADANE [Suspect]
     Indication: HOMOCYSTINURIA
     Dosage: (6 G EVERY DAY), (16 G EVERY DAY)
     Route: 048
     Dates: start: 20010201
  2. PYRIDOXINE HYDROCHLORIDE [Concomitant]
  3. VITAMIN C [Concomitant]
  4. FOLIC ACID [Concomitant]
  5. VITAMIN B12 [Concomitant]

REACTIONS (5)
  - Skin odour abnormal [None]
  - Breath odour [None]
  - Social problem [None]
  - Trimethylaminuria [None]
  - Blood homocysteine increased [None]
